FAERS Safety Report 9330100 (Version 2)
Quarter: 2013Q3

REPORT INFORMATION
  Report Type: Spontaneous
  Country: US (occurrence: None)
  Receive Date: 20130531
  Receipt Date: 20130812
  Transmission Date: 20140515
  Serious: Yes (Hospitalization)
  Sender: FDA-Public Use
  Company Number: 2013-197

PATIENT
  Age: 67 Year
  Sex: Male

DRUGS (2)
  1. PRIALT [Suspect]
     Indication: SPINAL OSTEOARTHRITIS
     Dosage: UNK MCG, ONCE/HOUR, INTRATHECAL
     Dates: start: 20130510, end: 201305
  2. PRIALT [Suspect]
     Indication: PAIN
     Dosage: UNK MCG, ONCE/HOUR, INTRATHECAL
     Dates: start: 20130510, end: 201305

REACTIONS (4)
  - Spinal cord injury [None]
  - Hemiplegia [None]
  - Urinary retention [None]
  - Device issue [None]
